FAERS Safety Report 12683440 (Version 3)
Quarter: 2017Q1

REPORT INFORMATION
  Report Type: Report from Study
  Country: US (occurrence: US)
  Receive Date: 20160825
  Receipt Date: 20170206
  Transmission Date: 20170428
  Serious: No
  Sender: FDA-Public Use
  Company Number: US-TAKEDA-2016MPI007426

PATIENT
  Age: 72 Year
  Sex: Male
  Weight: 83.9 kg

DRUGS (3)
  1. IXAZOMIB [Suspect]
     Active Substance: IXAZOMIB
     Indication: PLASMA CELL MYELOMA
     Dosage: 4 MG, UNK
     Route: 048
     Dates: start: 201604
  2. DEXAMETHASONE. [Suspect]
     Active Substance: DEXAMETHASONE
     Indication: PRODUCT USED FOR UNKNOWN INDICATION
     Dosage: 20 MG, UNK
     Route: 065
  3. REVLIMID [Concomitant]
     Active Substance: LENALIDOMIDE
     Dosage: 10 MG, UNK
     Route: 065

REACTIONS (6)
  - Off label use [Unknown]
  - Diarrhoea [Unknown]
  - Product packaging quantity issue [Unknown]
  - Constipation [Unknown]
  - Drug dose omission [Unknown]
  - Product packaging issue [Unknown]

NARRATIVE: CASE EVENT DATE: 201604
